FAERS Safety Report 23079624 (Version 5)
Quarter: 2024Q4

REPORT INFORMATION
  Report Type: Report from Study
  Country: KR (occurrence: KR)
  Receive Date: 20231018
  Receipt Date: 20241021
  Transmission Date: 20250115
  Serious: Yes (Hospitalization)
  Sender: ROCHE
  Company Number: KR-ROCHE-3400388

PATIENT
  Age: 61 Year
  Sex: Male
  Weight: 78.2 kg

DRUGS (16)
  1. ERLOTINIB [Suspect]
     Active Substance: ERLOTINIB
     Indication: Small intestine carcinoma
     Dosage: SUBSEQUENT DOSE ADMINISTERED ON 21/JUL/2023, 04/AUG/2023, 18/AUG/2023, 01/SEP/2023, 15/SEP/2023, 04/
     Route: 048
     Dates: start: 20230707
  2. BEVACIZUMAB [Suspect]
     Active Substance: BEVACIZUMAB
     Indication: Small intestine carcinoma
     Dosage: SUBSEQUENT DOSE ADMINISTERED ON 21/JUL/2023, 04/AUG/2023, 18/AUG/2023, 15/SEP/2023, 04/OCT/2023, 18/
     Route: 042
     Dates: start: 20230707
  3. GINEXIN-F [Concomitant]
     Route: 048
     Dates: start: 20220617
  4. ULTRACET [Concomitant]
     Active Substance: ACETAMINOPHEN\TRAMADOL HYDROCHLORIDE
     Dates: start: 20221018
  5. LYRICA [Concomitant]
     Active Substance: PREGABALIN
     Dates: start: 20230315
  6. SENSIVAL [Concomitant]
     Dates: start: 20230405
  7. NICARDIPINE HYDROCHLORIDE [Concomitant]
     Active Substance: NICARDIPINE HYDROCHLORIDE
     Dates: start: 20230707, end: 20230707
  8. TELMICAN [Concomitant]
     Dates: start: 20230707, end: 20230831
  9. CLEOCIN [Concomitant]
     Active Substance: CLINDAMYCIN PHOSPHATE
     Dates: start: 20230718
  10. LACTICARE [Concomitant]
     Dates: start: 20230718
  11. HYDROXYZINE HYDROCHLORIDE [Concomitant]
     Active Substance: HYDROXYZINE HYDROCHLORIDE
     Dates: start: 20230718
  12. TANTUM [Concomitant]
     Active Substance: BENZYDAMINE HYDROCHLORIDE
  13. NORVASC [Concomitant]
     Active Substance: AMLODIPINE BESYLATE
     Dates: start: 20230907
  14. RIVOTRIL [Concomitant]
     Active Substance: CLONAZEPAM
     Dates: start: 20230915
  15. LEVOFLOXACIN [Concomitant]
     Active Substance: LEVOFLOXACIN
     Dates: start: 20231012, end: 20231013
  16. LEVOPLUS [LEVOFLOXACIN] [Concomitant]
     Dates: start: 20231013, end: 20231020

REACTIONS (7)
  - Hypertension [Not Recovered/Not Resolved]
  - Rash [Recovered/Resolved]
  - Stomatitis [Recovered/Resolved]
  - Palmar-plantar erythrodysaesthesia syndrome [Not Recovered/Not Resolved]
  - Gastric haemorrhage [Recovered/Resolved]
  - Pneumonia [Recovered/Resolved]
  - Diarrhoea [Not Recovered/Not Resolved]

NARRATIVE: CASE EVENT DATE: 20230707
